FAERS Safety Report 9619561 (Version 2)
Quarter: 2013Q4

REPORT INFORMATION
  Report Type: Spontaneous
  Country: US (occurrence: US)
  Receive Date: 20131014
  Receipt Date: 20131018
  Transmission Date: 20140711
  Serious: Yes (Other)
  Sender: FDA-Public Use
  Company Number: US-PFIZER INC-2013286744

PATIENT
  Age: 42 Year
  Sex: Female

DRUGS (1)
  1. ROBITUSSIN CHILDREN^S COUGH LONG ACTING [Suspect]
     Dosage: UNK, SINGLE
     Dates: start: 20131005, end: 20131005

REACTIONS (7)
  - Off label use [Unknown]
  - Aphagia [Unknown]
  - Feeling abnormal [Unknown]
  - Tremor [Unknown]
  - Eye discharge [Unknown]
  - Periorbital contusion [Unknown]
  - Palpitations [Unknown]
